FAERS Safety Report 5059455-4 (Version None)
Quarter: 2006Q2

REPORT INFORMATION
  Report Type: 
  Country: None (occurrence: None)
  Receive Date: 20060629
  Receipt Date: 20060307
  Transmission Date: 20061013
  Serious: No
  Sender: FDA-Public Use
  Company Number: PHEH2006US03092

PATIENT
  Age: 77 Year
  Sex: Female

DRUGS (5)
  1. ENABLEX [Suspect]
     Indication: HYPERTONIC BLADDER
     Dosage: 15 MG, QD
     Dates: start: 20051101
  2. MAXZIDE [Concomitant]
  3. FLONASE [Concomitant]
  4. ADVAIR DISKUS 100/50 [Concomitant]
  5. SINEQUAN [Concomitant]

REACTIONS (4)
  - DRY MOUTH [None]
  - JAW DISORDER [None]
  - LYMPHADENOPATHY [None]
  - SWELLING [None]
